FAERS Safety Report 22280651 (Version 1)
Quarter: 2023Q2

REPORT INFORMATION
  Report Type: Spontaneous
  Country: US (occurrence: None)
  Receive Date: 20230502
  Receipt Date: 20230502
  Transmission Date: 20230722
  Serious: Yes (Disabling)
  Sender: FDA-Public Use
  Company Number: None

PATIENT
  Age: 22 Year
  Sex: Male
  Weight: 85.5 kg

DRUGS (1)
  1. ROCEPHIN [Suspect]
     Active Substance: CEFTRIAXONE SODIUM
     Dates: start: 20230314, end: 20230314

REACTIONS (12)
  - Pain [None]
  - Hyperhidrosis [None]
  - Nausea [None]
  - Decreased appetite [None]
  - Pain in extremity [None]
  - Headache [None]
  - Pain in extremity [None]
  - Neck pain [None]
  - Chest pain [None]
  - Scrotal pain [None]
  - Feeling of despair [None]
  - Lymphadenopathy [None]

NARRATIVE: CASE EVENT DATE: 20230314
